FAERS Safety Report 13609282 (Version 6)
Quarter: 2018Q3

REPORT INFORMATION
  Report Type: Spontaneous
  Country: CN (occurrence: CN)
  Receive Date: 20170602
  Receipt Date: 20180917
  Transmission Date: 20181010
  Serious: Yes (Hospitalization, Other)
  Sender: FDA-Public Use
  Company Number: PHHY2017CN074211

PATIENT
  Age: 50 Year
  Sex: Male

DRUGS (4)
  1. TEGRETOL [Suspect]
     Active Substance: CARBAMAZEPINE
     Indication: PARTIAL SEIZURES
     Dosage: 1 DF, QD
     Route: 048
     Dates: start: 20170510, end: 20170515
  2. TEGRETOL [Suspect]
     Active Substance: CARBAMAZEPINE
     Indication: EPILEPSY
  3. TEGRETOL [Suspect]
     Active Substance: CARBAMAZEPINE
     Indication: GENERALISED TONIC-CLONIC SEIZURE
  4. TEGRETOL [Suspect]
     Active Substance: CARBAMAZEPINE
     Indication: TRIGEMINAL NEURALGIA

REACTIONS (33)
  - Drug-induced liver injury [Recovered/Resolved]
  - Dyspnoea [Recovered/Resolved]
  - Generalised erythema [Recovered/Resolved]
  - Mental disorder [Recovered/Resolved]
  - Asthenia [Unknown]
  - Skin infection [Recovered/Resolved]
  - Prescription drug used without a prescription [Recovered/Resolved]
  - Intervertebral disc protrusion [Recovered/Resolved]
  - Aggression [Unknown]
  - Erythema [Recovered/Resolved]
  - Epilepsy [Recovered/Resolved]
  - Emphysema [Recovered/Resolved]
  - Eating disorder [Recovered/Resolved]
  - Cholelithiasis [Recovered/Resolved]
  - Blood pressure increased [Recovered/Resolved]
  - Pyrexia [Recovered/Resolved]
  - Respiratory disorder [Recovered/Resolved]
  - Insomnia [Recovered/Resolved]
  - Renal cyst [Recovered/Resolved]
  - Pain in extremity [Unknown]
  - Drug hypersensitivity [Recovered/Resolved]
  - Blister [Recovered/Resolved]
  - Cough [Recovered/Resolved]
  - Cerebral disorder [Unknown]
  - Skin erosion [Recovered/Resolved]
  - Post-traumatic epilepsy [Recovered/Resolved]
  - Alanine aminotransferase increased [Recovered/Resolved]
  - Gait disturbance [Unknown]
  - Drug eruption [Recovered/Resolved]
  - Pneumonia [Recovered/Resolved]
  - Ulcer [Recovered/Resolved]
  - Rash [Recovered/Resolved]
  - Abnormal behaviour [Unknown]

NARRATIVE: CASE EVENT DATE: 20170509
